FAERS Safety Report 6559541-3 (Version None)
Quarter: 2010Q1

REPORT INFORMATION
  Report Type: 
  Country: None (occurrence: None)
  Receive Date: 20100129
  Receipt Date: 20090904
  Transmission Date: 20100710
  Serious: No
  Sender: FDA-Public Use
  Company Number: US-ABBOTT-09P-163-0595383-00

PATIENT
  Sex: Female
  Weight: 59.474 kg

DRUGS (1)
  1. HUMIRA [Suspect]
     Indication: CROHN'S DISEASE
     Dates: start: 20090429

REACTIONS (3)
  - ORAL HERPES [None]
  - PYREXIA [None]
  - TOOTHACHE [None]
